FAERS Safety Report 7513567-1 (Version None)
Quarter: 2011Q2

REPORT INFORMATION
  Report Type: 
  Country: None (occurrence: None)
  Receive Date: 20110531
  Receipt Date: 20110525
  Transmission Date: 20111010
  Serious: Yes (Life-Threatening, Hospitalization)
  Sender: FDA-Public Use
  Company Number: US-ROCHE-773008

PATIENT
  Sex: Female
  Weight: 59.4 kg

DRUGS (7)
  1. RIBAVIRIN [Suspect]
     Indication: HEPATITIS C
     Route: 048
     Dates: start: 20110328, end: 20110411
  2. MEDROXYPROGESTERONE [Concomitant]
     Indication: MENORRHAGIA
     Dosage: DOSE: 10 MG/ DAY PRN.
     Dates: start: 20100901
  3. IMODIUM [Concomitant]
     Dosage: FREQUENCY: PRN.
     Dates: start: 20110407
  4. CEPHALEXIN [Concomitant]
     Dates: start: 20110101
  5. PEGINTERFERON ALFA-2A [Suspect]
     Indication: HEPATITIS C
     Route: 058
     Dates: start: 20110328, end: 20110405
  6. BLINDED CTS-1027 (MMP INHIBITOR) [Suspect]
     Indication: HEPATITIS C
     Dosage: BLIND BREAK WAS ON 18 APRIL 2011. PATIENT RECEIVED CTS 1027 60 MG BID.
     Route: 048
     Dates: start: 20110328, end: 20110411
  7. PROMETRIUM [Concomitant]
     Indication: MENORRHAGIA
     Dates: start: 20100901

REACTIONS (1)
  - HEPATITIS ACUTE [None]
